FAERS Safety Report 10602120 (Version 1)
Quarter: 2014Q4

REPORT INFORMATION
  Report Type: Spontaneous
  Country: JP (occurrence: None)
  Receive Date: 20141120
  Receipt Date: 20141120
  Transmission Date: 20150529
  Serious: Yes (Hospitalization)
  Sender: FDA-Public Use
  Company Number: FK201405217

PATIENT
  Age: 29 Year
  Sex: Female

DRUGS (3)
  1. VALPROATE [Suspect]
     Active Substance: VALPROATE SODIUM
     Indication: EPILEPSY
     Route: 048
     Dates: start: 2010
  2. PHENYTOIN. [Suspect]
     Active Substance: PHENYTOIN
     Indication: SEIZURE
     Route: 042
     Dates: start: 201001
  3. LEVETIRACETAM. [Suspect]
     Active Substance: LEVETIRACETAM
     Indication: SEIZURE
     Dosage: HOSPITAL DAY 3-3 DAYS AFTER DISCHARGE

REACTIONS (6)
  - Heart rate increased [None]
  - Drug level decreased [None]
  - Hyperkalaemia [None]
  - Rhabdomyolysis [None]
  - Drug interaction [None]
  - Altered state of consciousness [None]
